FAERS Safety Report 8163409-9 (Version None)
Quarter: 2012Q1

REPORT INFORMATION
  Report Type: 
  Country: None (occurrence: None)
  Receive Date: 20120224
  Receipt Date: 20120221
  Transmission Date: 20120608
  Serious: Yes (Death, Hospitalization)
  Sender: FDA-Public Use
  Company Number: US-US-EMD SERONO, INC.-7113434

PATIENT
  Sex: Male

DRUGS (10)
  1. OMEPRAZOLE [Concomitant]
  2. ETOPOSIDE [Suspect]
     Indication: ACUTE MYELOID LEUKAEMIA
     Dates: start: 20111228
  3. MDX-1338 [Suspect]
     Indication: ACUTE MYELOID LEUKAEMIA
     Route: 042
     Dates: start: 20111220, end: 20120111
  4. CYTARABINE [Suspect]
     Indication: ACUTE MYELOID LEUKAEMIA
     Dates: start: 20111228
  5. FLUCONAZOLE [Concomitant]
     Dates: end: 20120109
  6. ZOLPIDEM [Concomitant]
  7. ACYCLOVIR [Concomitant]
  8. DAPSONE [Concomitant]
  9. MEROPENEM [Concomitant]
     Dates: start: 20120103, end: 20120118
  10. NOVANTRONE [Suspect]
     Indication: ACUTE MYELOID LEUKAEMIA
     Dates: start: 20111228

REACTIONS (3)
  - NEOPLASM MALIGNANT [None]
  - BRONCHOPULMONARY ASPERGILLOSIS [None]
  - ENTEROCOCCAL INFECTION [None]
